FAERS Safety Report 7492834-4 (Version None)
Quarter: 2011Q2

REPORT INFORMATION
  Report Type: 
  Country: None (occurrence: None)
  Receive Date: 20110520
  Receipt Date: 20110516
  Transmission Date: 20111010
  Serious: Yes (Other)
  Sender: FDA-Public Use
  Company Number: JP-BRISTOL-MYERS SQUIBB COMPANY-15525371

PATIENT
  Age: 66 Year
  Sex: Female

DRUGS (4)
  1. NORVASC [Concomitant]
     Indication: HYPERTENSION
     Dates: start: 20090803
  2. LEVEMIR [Concomitant]
     Dates: start: 20091006
  3. INSULIN ASPART [Concomitant]
     Dates: start: 20090803
  4. IRBESARTAN [Suspect]
     Indication: HYPERTENSION
     Route: 048
     Dates: start: 20090803

REACTIONS (1)
  - PROTEINURIA [None]
